FAERS Safety Report 8717499 (Version 2)
Quarter: 2013Q4

REPORT INFORMATION
  Report Type: Spontaneous
  Country: US (occurrence: US)
  Receive Date: 20120810
  Receipt Date: 20131101
  Transmission Date: 20140711
  Serious: No
  Sender: FDA-Public Use
  Company Number: US-009507513-1207USA011617

PATIENT
  Age: 56 Year
  Sex: Male

DRUGS (3)
  1. SAPHRIS [Suspect]
     Indication: BIPOLAR DISORDER
     Dosage: UNK
     Route: 060
     Dates: start: 201108, end: 201206
  2. VIIBRYD [Concomitant]
  3. DIOVAN [Concomitant]

REACTIONS (2)
  - Anxiety [Not Recovered/Not Resolved]
  - Depression [Not Recovered/Not Resolved]
